FAERS Safety Report 21527213 (Version 3)
Quarter: 2022Q4

REPORT INFORMATION
  Report Type: Spontaneous
  Country: HU (occurrence: HU)
  Receive Date: 20221031
  Receipt Date: 20221121
  Transmission Date: 20230112
  Serious: Yes (Other)
  Sender: FDA-Public Use
  Company Number: HU-NOVARTISPH-NVSC2022HU242626

PATIENT
  Sex: Female

DRUGS (4)
  1. ACLASTA [Suspect]
     Active Substance: ZOLEDRONIC ACID
     Indication: Osteoporosis
     Dosage: UNK UNK, ONCE/SINGLE
     Route: 065
     Dates: start: 20120504
  2. ACLASTA [Suspect]
     Active Substance: ZOLEDRONIC ACID
     Dosage: UNK
     Route: 065
     Dates: start: 2013, end: 2013
  3. ALPRAZOLAM [Concomitant]
     Active Substance: ALPRAZOLAM
     Indication: Product used for unknown indication
     Dosage: 0.5 UNK, QD (DOSE: 0.5 ;, UNITS: UNKNOWN) (IN THE EVENINGS)
     Route: 065
  4. VITAMIN D3 [Concomitant]
     Active Substance: CHOLECALCIFEROL
     Indication: Product used for unknown indication
     Dosage: 1000 IU (FREQUENCY: 2X)
     Route: 065

REACTIONS (4)
  - Polyarthritis [Recovered/Resolved]
  - Pain [Recovered/Resolved]
  - Osteonecrosis [Unknown]
  - Dental cyst [Unknown]

NARRATIVE: CASE EVENT DATE: 20120501
